FAERS Safety Report 8780371 (Version 1)
Quarter: 2012Q4

REPORT INFORMATION
  Report Type: Spontaneous
  Country: US (occurrence: None)
  Receive Date: 20120830
  Receipt Date: 20120830
  Transmission Date: 20130627
  Serious: Yes (Hospitalization, Other)
  Sender: FDA-Public Use
  Company Number: DSU-2012-06594

PATIENT
  Age: 53 Year
  Sex: Female
  Weight: 108.86 kg

DRUGS (5)
  1. TRIBENZOR [Suspect]
     Indication: HYPERTENSION
     Route: 048
     Dates: start: 2009
  2. TRIBENZOR [Suspect]
     Route: 048
     Dates: start: 2009
  3. DILAUDID [Concomitant]
  4. FLEXERIL [Concomitant]
  5. MOBIC [Concomitant]

REACTIONS (5)
  - Ankle operation [None]
  - Neck surgery [None]
  - Impaired work ability [None]
  - Knee operation [None]
  - Road traffic accident [None]
